FAERS Safety Report 20049159 (Version 9)
Quarter: 2023Q4

REPORT INFORMATION
  Report Type: Report from Study
  Country: US (occurrence: US)
  Receive Date: 20211109
  Receipt Date: 20231007
  Transmission Date: 20240110
  Serious: No
  Sender: FDA-Public Use
  Company Number: US-NOVARTISTESTPH-NVSC2021US256341

PATIENT
  Sex: Female

DRUGS (3)
  1. KESIMPTA [Suspect]
     Active Substance: OFATUMUMAB
     Indication: Multiple sclerosis
     Dosage: 20 MG, QMO
     Route: 058
     Dates: start: 20211031
  2. KESIMPTA [Suspect]
     Active Substance: OFATUMUMAB
     Indication: Relapsing multiple sclerosis
  3. TRAMADOL [Concomitant]
     Active Substance: TRAMADOL\TRAMADOL HYDROCHLORIDE
     Indication: Product used for unknown indication
     Dosage: UNK
     Route: 065

REACTIONS (4)
  - Contusion [Recovering/Resolving]
  - Nail discolouration [Recovering/Resolving]
  - Nasopharyngitis [Not Recovered/Not Resolved]
  - Influenza [Not Recovered/Not Resolved]
